FAERS Safety Report 22094859 (Version 1)
Quarter: 2023Q1

REPORT INFORMATION
  Report Type: Spontaneous
  Country: JP (occurrence: JP)
  Receive Date: 20230314
  Receipt Date: 20230314
  Transmission Date: 20230418
  Serious: Yes (Death, Hospitalization, Other)
  Sender: FDA-Public Use
  Company Number: JP-ELI_LILLY_AND_COMPANY-JP202303006523

PATIENT
  Age: 31 Year
  Sex: Male
  Weight: 47 kg

DRUGS (22)
  1. ADCIRCA [Suspect]
     Active Substance: TADALAFIL
     Indication: Pulmonary arterial hypertension
     Dosage: 40 MG, DAILY
     Route: 065
     Dates: start: 20130731, end: 20171116
  2. UPTRAVI [Suspect]
     Active Substance: SELEXIPAG
     Indication: Pulmonary arterial hypertension
     Dosage: 0.2 MG, BID
     Route: 048
     Dates: start: 20170412, end: 20170704
  3. UPTRAVI [Suspect]
     Active Substance: SELEXIPAG
     Dosage: UNK UNK, BID
     Route: 048
     Dates: start: 20170705, end: 20170801
  4. UPTRAVI [Suspect]
     Active Substance: SELEXIPAG
     Dosage: 1.2 MG, DAILY
     Route: 048
     Dates: start: 20170802, end: 20170829
  5. UPTRAVI [Suspect]
     Active Substance: SELEXIPAG
     Dosage: 1.4 MG, DAILY
     Route: 048
     Dates: start: 20170830, end: 20170926
  6. UPTRAVI [Suspect]
     Active Substance: SELEXIPAG
     Dosage: 1.6 MG, DAILY
     Route: 048
     Dates: start: 20170927, end: 20171024
  7. UPTRAVI [Suspect]
     Active Substance: SELEXIPAG
     Dosage: 0.9 MG, DAILY
     Route: 048
     Dates: start: 20171025, end: 20171205
  8. UPTRAVI [Suspect]
     Active Substance: SELEXIPAG
     Dosage: 1 MG, BID
     Route: 048
     Dates: start: 20171206, end: 20180206
  9. UPTRAVI [Suspect]
     Active Substance: SELEXIPAG
     Dosage: 1.1 MG, BID
     Route: 048
     Dates: start: 20180207, end: 20180306
  10. UPTRAVI [Suspect]
     Active Substance: SELEXIPAG
     Dosage: 1.2 MG, BID
     Route: 048
     Dates: start: 20180307, end: 20180410
  11. UPTRAVI [Suspect]
     Active Substance: SELEXIPAG
     Dosage: 1.3 MG, BID
     Route: 048
     Dates: start: 20180411, end: 20180619
  12. UPTRAVI [Suspect]
     Active Substance: SELEXIPAG
     Dosage: 1.2 MG, BID
     Route: 048
     Dates: start: 20180620, end: 20210709
  13. OPSUMIT [Concomitant]
     Active Substance: MACITENTAN
     Indication: Pulmonary arterial hypertension
     Dosage: 10 MG, DAILY
     Route: 065
     Dates: start: 20150826, end: 20210709
  14. DIPYRIDAMOLE [Concomitant]
     Active Substance: DIPYRIDAMOLE
     Indication: Product used for unknown indication
     Dosage: 75 MG, DAILY
     Route: 065
     Dates: end: 20210709
  15. DIGOXIN [Concomitant]
     Active Substance: DIGOXIN
     Indication: Right ventricular failure
     Dosage: 0.25 MG, DAILY
     Route: 065
     Dates: end: 20210709
  16. FUROSEMIDE [Concomitant]
     Active Substance: FUROSEMIDE
     Indication: Right ventricular failure
     Dosage: 10 MG, DAILY
     Route: 065
     Dates: end: 20190618
  17. FUROSEMIDE [Concomitant]
     Active Substance: FUROSEMIDE
     Dosage: 30 MG, DAILY
     Route: 065
     Dates: start: 20190620, end: 20200107
  18. FUROSEMIDE [Concomitant]
     Active Substance: FUROSEMIDE
     Dosage: 40 MG, DAILY
     Route: 065
     Dates: start: 20200108, end: 20210709
  19. REVATIO [Concomitant]
     Active Substance: SILDENAFIL CITRATE
     Indication: Pulmonary arterial hypertension
     Dosage: 60 MG, DAILY
     Route: 065
     Dates: end: 20171116
  20. ALLOPURINOL [Concomitant]
     Active Substance: ALLOPURINOL
     Indication: Hyperuricaemia
     Dosage: 100 MG, DAILY
     Route: 065
     Dates: end: 20210709
  21. ADEMPAS [Concomitant]
     Active Substance: RIOCIGUAT
     Indication: Pulmonary arterial hypertension
     Dosage: 3 MG, UNKNOWN
     Route: 065
     Dates: start: 20171117
  22. ADEMPAS [Concomitant]
     Active Substance: RIOCIGUAT
     Dosage: 7.5 MG, UNKNOWN
     Route: 065
     Dates: end: 20210709

REACTIONS (4)
  - Pulmonary arterial hypertension [Fatal]
  - Ascites [Fatal]
  - Abdominal distension [Fatal]
  - Hypotension [Not Recovered/Not Resolved]

NARRATIVE: CASE EVENT DATE: 20200304
